FAERS Safety Report 8252666-6 (Version None)
Quarter: 2012Q2

REPORT INFORMATION
  Report Type: 
  Country: None (occurrence: None)
  Receive Date: 20120402
  Receipt Date: 20110805
  Transmission Date: 20120825
  Serious: No
  Sender: FDA-Public Use
  Company Number: US-ABBOTT-11P-163-0844449-00

PATIENT
  Age: 62 Year
  Sex: Male
  Weight: 72.64 kg

DRUGS (1)
  1. ANDROGEL [Suspect]
     Indication: BLOOD TESTOSTERONE DECREASED
     Dates: start: 20090101

REACTIONS (3)
  - OEDEMA PERIPHERAL [None]
  - BLOOD TESTOSTERONE DECREASED [None]
  - DRUG ADMINISTERED AT INAPPROPRIATE SITE [None]
